FAERS Safety Report 9064764 (Version 2)
Quarter: 2014Q2

REPORT INFORMATION
  Report Type: Spontaneous
  Country: US (occurrence: US)
  Receive Date: 20130130
  Receipt Date: 20140429
  Transmission Date: 20141212
  Serious: Yes (Hospitalization)
  Sender: FDA-Public Use
  Company Number: US-ASTRAZENECA-2013SE05940

PATIENT
  Age: 56 Year
  Sex: Female
  Weight: 93 kg

DRUGS (9)
  1. NEXIUM [Suspect]
     Indication: GASTROOESOPHAGEAL REFLUX DISEASE
     Dosage: BID
     Route: 048
     Dates: start: 2009
  2. NEXIUM [Suspect]
     Indication: GASTROOESOPHAGEAL REFLUX DISEASE
     Route: 048
  3. NEXIUM [Suspect]
     Indication: GASTROOESOPHAGEAL REFLUX DISEASE
     Route: 048
  4. METOPROLOL [Suspect]
     Indication: PALPITATIONS
     Route: 065
  5. METOPROLOL [Suspect]
     Indication: SUPRAVENTRICULAR TACHYCARDIA
     Route: 065
  6. GLIMEPIRIDE [Concomitant]
     Indication: DIABETES MELLITUS
     Dates: start: 2009
  7. METFORMIN [Concomitant]
     Indication: DIABETES MELLITUS
     Dates: start: 2009
  8. TRILIPIX [Concomitant]
     Indication: BLOOD CHOLESTEROL ABNORMAL
     Dates: start: 2011
  9. METROPATHOL [Concomitant]
     Indication: BLOOD MAGNESIUM DECREASED
     Dates: start: 201401

REACTIONS (16)
  - Palpitations [Not Recovered/Not Resolved]
  - Spinal disorder [Unknown]
  - Osteoporosis [Unknown]
  - Diabetes mellitus [Unknown]
  - Blood cholesterol abnormal [Unknown]
  - Nausea [Not Recovered/Not Resolved]
  - Vitamin D deficiency [Not Recovered/Not Resolved]
  - Abdominal rigidity [Not Recovered/Not Resolved]
  - Magnesium deficiency [Unknown]
  - Irritable bowel syndrome [Unknown]
  - Supraventricular tachycardia [Unknown]
  - Muscle spasms [Unknown]
  - Back disorder [Unknown]
  - Asthenia [Unknown]
  - Fatigue [Unknown]
  - Intentional product misuse [Unknown]
